FAERS Safety Report 23293714 (Version 1)
Quarter: 2023Q4

REPORT INFORMATION
  Report Type: Spontaneous
  Country: JP (occurrence: JP)
  Receive Date: 20231213
  Receipt Date: 20231213
  Transmission Date: 20240110
  Serious: Yes (Other)
  Sender: FDA-Public Use
  Company Number: JP-TRIS PHARMA, INC.-23JP011225

PATIENT

DRUGS (25)
  1. METHYLPHENIDATE HYDROCHLORIDE [Suspect]
     Active Substance: METHYLPHENIDATE HYDROCHLORIDE
     Indication: Attention deficit hyperactivity disorder
     Dosage: 18 MILLIGRAM, DAILY (ON DAY 1440)
  2. METHYLPHENIDATE HYDROCHLORIDE [Suspect]
     Active Substance: METHYLPHENIDATE HYDROCHLORIDE
     Indication: Autism spectrum disorder
     Dosage: 36 MILLIGRAM, DAILY (ON DAY 1251)
  3. METHYLPHENIDATE HYDROCHLORIDE [Suspect]
     Active Substance: METHYLPHENIDATE HYDROCHLORIDE
     Dosage: 18 MILLIGRAM, DAILY (ON DAY 1076)
  4. METHYLPHENIDATE HYDROCHLORIDE [Suspect]
     Active Substance: METHYLPHENIDATE HYDROCHLORIDE
     Dosage: 18 MILLIGRAM, DAILY (ON DAY 159)
  5. METHYLPHENIDATE HYDROCHLORIDE [Suspect]
     Active Substance: METHYLPHENIDATE HYDROCHLORIDE
     Dosage: 27 MILLIGRAM, DAILY (ON DAY 112)
  6. METHYLPHENIDATE HYDROCHLORIDE [Suspect]
     Active Substance: METHYLPHENIDATE HYDROCHLORIDE
     Dosage: 18 MILLIGRAM, DAILY (ON DAY 96)
  7. GUANFACINE [Suspect]
     Active Substance: GUANFACINE
     Indication: Attention deficit hyperactivity disorder
     Dosage: 4 MILLIGRAM, DAILY (DAY 1139)
  8. GUANFACINE [Suspect]
     Active Substance: GUANFACINE
     Indication: Hypertension
     Dosage: 3 MILLIGRAM, DAILY (DAY 1048)
  9. GUANFACINE [Suspect]
     Active Substance: GUANFACINE
     Indication: Autism spectrum disorder
     Dosage: 2 MILLIGRAM, DAILY (DAY 988)
  10. GUANFACINE [Suspect]
     Active Substance: GUANFACINE
     Dosage: 3 MILLIGRAM, DAILY (DAY 743)
  11. GUANFACINE [Suspect]
     Active Substance: GUANFACINE
     Dosage: 4 MILLIGRAM, DAILY (DAY 684)
  12. GUANFACINE [Suspect]
     Active Substance: GUANFACINE
     Dosage: 3 MILLIGRAM, DAILY (DAY 362)
  13. GUANFACINE [Suspect]
     Active Substance: GUANFACINE
     Dosage: 2 MILLIGRAM, DAILY (DAY 348)
  14. GUANFACINE [Suspect]
     Active Substance: GUANFACINE
     Dosage: 1 MILLIGRAM, DAILY (DAY 320)
  15. ATOMOXETINE [Suspect]
     Active Substance: ATOMOXETINE
     Indication: Attention deficit hyperactivity disorder
     Dosage: 25 MILLIGRAM, DAILY (DAY 348)
  16. ATOMOXETINE [Suspect]
     Active Substance: ATOMOXETINE
     Indication: Autism spectrum disorder
     Dosage: 50 MILLIGRAM, DAILY (DAY 187)
  17. ATOMOXETINE [Suspect]
     Active Substance: ATOMOXETINE
     Dosage: 40 MILLIGRAM, DAILY (DAY 159)
  18. ATOMOXETINE [Suspect]
     Active Substance: ATOMOXETINE
     Dosage: 20 MILLIGRAM, DAILY (DAY 134)
  19. CANDESARTAN [Concomitant]
     Active Substance: CANDESARTAN
     Indication: Hypertension
     Dosage: 2 MILLIGRAM, DAILY
  20. CANDESARTAN [Concomitant]
     Active Substance: CANDESARTAN
     Dosage: 4 MILLIGRAM, DAILY
  21. CANDESARTAN [Concomitant]
     Active Substance: CANDESARTAN
     Dosage: 2 MILLIGRAM, DAILY
  22. ACETAMINOPHEN [Concomitant]
     Active Substance: ACETAMINOPHEN
     Indication: Back pain
     Dosage: 1800 MILLIGRAM, DAILY
  23. ACETAMINOPHEN [Concomitant]
     Active Substance: ACETAMINOPHEN
     Dosage: 600 MILLIGRAM, DAILY
  24. TRAMADOL [Concomitant]
     Active Substance: TRAMADOL\TRAMADOL HYDROCHLORIDE
     Indication: Back pain
     Dosage: 75 MILLIGRAM, DAILY
  25. LOXOPROFEN [Concomitant]
     Active Substance: LOXOPROFEN
     Indication: Back pain
     Dosage: 60 MILLIGRAM, DAILY

REACTIONS (8)
  - Partial seizures [Recovered/Resolved]
  - Therapeutic response unexpected [Unknown]
  - Off label use [Unknown]
  - Constipation [Unknown]
  - Headache [Unknown]
  - Tachycardia [Unknown]
  - Dry mouth [Unknown]
  - Hypertension [Recovered/Resolved]
